FAERS Safety Report 4357368-4 (Version None)
Quarter: 2004Q2

REPORT INFORMATION
  Report Type: 
  Country: None (occurrence: None)
  Receive Date: 20040506
  Receipt Date: 20040422
  Transmission Date: 20050107
  Serious: Yes (Other)
  Sender: FDA-Public Use
  Company Number: ZONI001403

PATIENT
  Sex: Male

DRUGS (8)
  1. ZONERGAN (ZONISAMIDE) [Suspect]
     Dosage: 100 MG DAILY ORAL
     Route: 048
     Dates: start: 20040414, end: 20040414
  2. DEPAKOTE [Concomitant]
  3. WELLBUTRIN [Concomitant]
  4. CYTOMEL [Concomitant]
  5. ZOCOR [Concomitant]
  6. ATENOLOL [Concomitant]
  7. LEVITRA (VARDENIFIL HCL) [Concomitant]
  8. UNSPECIFIED CALCIUM CHANNEL BLOCKER (UNSPECIFIED CALCIUM CHANNEL BLOCK [Concomitant]

REACTIONS (5)
  - BACK PAIN [None]
  - BLOOD PRESSURE DECREASED [None]
  - BODY TEMPERATURE DECREASED [None]
  - BRONCHOSPASM [None]
  - MUSCLE CRAMP [None]
